FAERS Safety Report 4934925-5 (Version None)
Quarter: 2006Q1

REPORT INFORMATION
  Report Type: 
  Country: None (occurrence: None)
  Receive Date: 20060306
  Receipt Date: 20060306
  Transmission Date: 20060701
  Serious: Yes (Disabling)
  Sender: FDA-Public Use
  Company Number: None

PATIENT
  Age: 67 Year
  Sex: Female
  Weight: 76 kg

DRUGS (1)
  1. DEFINITY [Suspect]
     Indication: CHEST PAIN
     Dates: start: 20060124, end: 20060124

REACTIONS (1)
  - VENTRICULAR TACHYCARDIA [None]
